FAERS Safety Report 17620350 (Version 2)
Quarter: 2020Q2

REPORT INFORMATION
  Report Type: Spontaneous
  Country: BE (occurrence: BE)
  Receive Date: 20200403
  Receipt Date: 20200418
  Transmission Date: 20200713
  Serious: Yes (Hospitalization, Other)
  Sender: FDA-Public Use
  Company Number: BE-ACCORD-178008

PATIENT
  Age: 17 Year
  Sex: Male

DRUGS (8)
  1. METHOTREXATE. [Suspect]
     Active Substance: METHOTREXATE
     Indication: T-CELL LYMPHOMA
     Dosage: I.V. HD-MTX (5000 MG/M2)
     Route: 042
  2. VORICONAZOLE. [Interacting]
     Active Substance: VORICONAZOLE
     Indication: BRONCHOPULMONARY ASPERGILLOSIS
     Route: 048
  3. MERCAPTOPURINE/MERCAPTOPURINE ANHYDROUS [Concomitant]
     Active Substance: MERCAPTOPURINE
     Indication: T-CELL LYMPHOMA
     Dosage: 775 MG/M2 OF THE INTENDED TOTAL OF 1400 MG/M2
     Route: 048
  4. METHOTREXATE. [Interacting]
     Active Substance: METHOTREXATE
     Indication: T-CELL LYMPHOMA
     Route: 037
  5. CYTARABINE/CYTARABINE HYDROCHLORIDE/CYTARABINE OCFOSFATE [Concomitant]
     Active Substance: CYTARABINE
     Indication: T-CELL LYMPHOMA
     Route: 039
  6. HEPARIN [Concomitant]
     Active Substance: HEPARIN SODIUM
     Indication: SUPERIOR SAGITTAL SINUS THROMBOSIS
     Dosage: LOW-MOLECULAR-WEIGHT
  7. METHYLPREDNISOLONE. [Concomitant]
     Active Substance: METHYLPREDNISOLONE
     Indication: T-CELL LYMPHOMA
     Route: 039
  8. RANITIDINE. [Concomitant]
     Active Substance: RANITIDINE
     Indication: ABDOMINAL PAIN UPPER

REACTIONS (5)
  - Sunburn [Recovered/Resolved]
  - Nephropathy toxic [Unknown]
  - Drug interaction [Unknown]
  - Cheilitis [Recovered/Resolved]
  - Drug level increased [Recovered/Resolved]
